FAERS Safety Report 12172513 (Version 1)
Quarter: 2016Q1

REPORT INFORMATION
  Report Type: Spontaneous
  Country: IT (occurrence: IT)
  Receive Date: 20160311
  Receipt Date: 20160311
  Transmission Date: 20160526
  Serious: Yes (Other)
  Sender: FDA-Public Use
  Company Number: IT-ELI_LILLY_AND_COMPANY-IT201603001523

PATIENT
  Age: 36 Year
  Sex: Female

DRUGS (2)
  1. ALIMTA [Suspect]
     Active Substance: PEMETREXED DISODIUM
     Indication: PRODUCT USED FOR UNKNOWN INDICATION
     Dosage: 1 DF, CYCLICAL
     Route: 065
     Dates: start: 20120402, end: 20120807
  2. CISPLATIN. [Suspect]
     Active Substance: CISPLATIN
     Indication: PRODUCT USED FOR UNKNOWN INDICATION
     Dosage: 1 DF, CYCLICAL
     Route: 065
     Dates: start: 20120402, end: 2012

REACTIONS (10)
  - Adenoidal disorder [Recovered/Resolved]
  - Ototoxicity [Unknown]
  - Tonsillar disorder [Recovered/Resolved]
  - Food allergy [Not Recovered/Not Resolved]
  - Asthma [Not Recovered/Not Resolved]
  - Chronic kidney disease [Not Recovered/Not Resolved]
  - Abdominal pain upper [Recovered/Resolved]
  - Nephropathy toxic [Unknown]
  - Rash [Recovered/Resolved]
  - Blood creatinine increased [Unknown]

NARRATIVE: CASE EVENT DATE: 201212
